FAERS Safety Report 11695290 (Version 1)
Quarter: 2015Q4

REPORT INFORMATION
  Report Type: Spontaneous
  Country: US (occurrence: US)
  Receive Date: 20151103
  Receipt Date: 20151103
  Transmission Date: 20160304
  Serious: Yes (Hospitalization)
  Sender: FDA-Public Use
  Company Number: US-AMGEN-USASP2015114379

PATIENT
  Age: 25 Year
  Sex: Female

DRUGS (1)
  1. BLINCYTO [Suspect]
     Active Substance: BLINATUMOMAB
     Indication: ACUTE LEUKAEMIA IN REMISSION
     Dosage: UNK
     Route: 065

REACTIONS (2)
  - Faecaloma [Recovered/Resolved]
  - Dehydration [Unknown]
